FAERS Safety Report 4898840-8 (Version None)
Quarter: 2006Q1

REPORT INFORMATION
  Report Type: 
  Country: None (occurrence: None)
  Receive Date: 20060202
  Receipt Date: 20060124
  Transmission Date: 20060701
  Serious: Yes (Congenital Anomaly)
  Sender: FDA-Public Use
  Company Number: JP-JPN-A200600307

PATIENT
  Age: 28 Year
  Sex: Female

DRUGS (18)
  1. PAXIL [Suspect]
     Indication: DEPRESSION
     Dosage: 10MG PER DAY
     Route: 048
     Dates: start: 20050921, end: 20050927
  2. PAXIL [Suspect]
     Dosage: 20MG PER DAY
     Route: 048
     Dates: start: 20050928, end: 20051101
  3. PAXIL [Suspect]
     Dosage: 30MG PER DAY
     Route: 048
     Dates: start: 20051102, end: 20051123
  4. PAXIL [Suspect]
     Dosage: 20MG PER DAY
     Route: 048
     Dates: start: 20051124, end: 20051129
  5. PAXIL [Suspect]
     Dosage: 10MG PER DAY
     Route: 048
     Dates: start: 20051130, end: 20051207
  6. PAXIL [Suspect]
     Dosage: 10MG PER DAY
     Route: 048
     Dates: start: 20051215, end: 20051226
  7. PAXIL [Suspect]
     Dosage: 20MG PER DAY
     Route: 048
     Dates: start: 20051227
  8. TECIPUL [Suspect]
     Indication: DEPRESSION
     Dosage: 1MG THREE TIMES PER DAY
     Route: 048
     Dates: start: 20050812, end: 20050818
  9. TECIPUL [Suspect]
     Dosage: 1MG PER DAY
     Route: 048
     Dates: start: 20050819
  10. DEPAS [Suspect]
     Indication: DEPRESSION
     Dosage: .5MG PER DAY
     Route: 048
     Dates: start: 20050806, end: 20051214
  11. NINJIN-TO [Concomitant]
     Indication: HYPEREMESIS GRAVIDARUM
     Dosage: 7.5G PER DAY
     Route: 048
     Dates: start: 20051201, end: 20051215
  12. NAUZELIN [Concomitant]
     Indication: HYPEREMESIS GRAVIDARUM
     Dosage: 60MG PER DAY
     Route: 054
     Dates: start: 20051130, end: 20051201
  13. DOGMATYL [Concomitant]
     Indication: DEPRESSION
     Dosage: 150MG PER DAY
     Route: 048
     Dates: start: 20050806, end: 20050812
  14. RIZE [Concomitant]
     Indication: DEPRESSION
     Dosage: 15MG PER DAY
     Route: 048
     Dates: start: 20050806, end: 20050928
  15. DEPROMEL [Concomitant]
     Indication: DEPRESSION
     Route: 048
     Dates: start: 20050806, end: 20050914
  16. TRYPTANOL [Concomitant]
     Indication: DEPRESSION
     Dosage: 30MG PER DAY
     Route: 048
     Dates: start: 20050914, end: 20050921
  17. MYSLEE [Concomitant]
     Indication: DEPRESSION
     Dosage: 10MG PER DAY
     Route: 048
     Dates: start: 20051214
  18. SILECE [Concomitant]
     Indication: DEPRESSION
     Dosage: 1MG PER DAY
     Route: 048
     Dates: start: 20051214

REACTIONS (2)
  - ABORTION SPONTANEOUS [None]
  - DRUG EXPOSURE DURING PREGNANCY [None]
